FAERS Safety Report 7609912-9 (Version None)
Quarter: 2011Q3

REPORT INFORMATION
  Report Type: 
  Country: None (occurrence: None)
  Receive Date: 20110714
  Receipt Date: 20090909
  Transmission Date: 20111222
  Serious: Yes (Death)
  Sender: FDA-Public Use
  Company Number: US-AMGEN-US363106

PATIENT
  Age: 77 Year
  Sex: Male

DRUGS (2)
  1. NPLATE [Suspect]
     Dosage: 81 A?G, UNK
     Dates: end: 20080115
  2. NPLATE [Suspect]
     Indication: IDIOPATHIC THROMBOCYTOPENIC PURPURA
     Dosage: UNK UNK, UNK
     Dates: start: 20081008

REACTIONS (1)
  - DEATH [None]
